FAERS Safety Report 8032934-3 (Version None)
Quarter: 2011Q4

REPORT INFORMATION
  Report Type: 
  Country: None (occurrence: None)
  Receive Date: 20111202
  Receipt Date: 20100803
  Transmission Date: 20120403
  Serious: Yes (Life-Threatening, Hospitalization, Other)
  Sender: FDA-Public Use
  Company Number: 2010SP042279

PATIENT
  Age: 45 Year
  Sex: Female
  Weight: 64.4108 kg

DRUGS (2)
  1. MULTI-VITAMINS [Concomitant]
  2. NUVARING [Suspect]
     Indication: CONTRACEPTION
     Dates: start: 20070601, end: 20070807

REACTIONS (3)
  - BREAST CANCER IN SITU [None]
  - COAGULOPATHY [None]
  - PULMONARY EMBOLISM [None]
